FAERS Safety Report 14249288 (Version 2)
Quarter: 2022Q1

REPORT INFORMATION
  Report Type: Spontaneous
  Country: US (occurrence: US)
  Receive Date: 20171204
  Receipt Date: 20220128
  Transmission Date: 20220423
  Serious: No
  Sender: FDA-Public Use
  Company Number: US-BIOGEN-2017BI00489588

PATIENT
  Sex: Female

DRUGS (4)
  1. AVONEX PEN [Suspect]
     Active Substance: INTERFERON BETA-1A
     Indication: Multiple sclerosis
     Route: 050
     Dates: end: 20220113
  2. AVONEX PEN [Suspect]
     Active Substance: INTERFERON BETA-1A
  3. AVONEX PEN [Suspect]
     Active Substance: INTERFERON BETA-1A
  4. AVONEX PEN [Suspect]
     Active Substance: INTERFERON BETA-1A

REACTIONS (2)
  - Drug delivery system malfunction [Unknown]
  - Puncture site haemorrhage [Unknown]
